FAERS Safety Report 9512122 (Version 2)
Quarter: 2013Q3

REPORT INFORMATION
  Report Type: Spontaneous
  Country: US (occurrence: US)
  Receive Date: 20130910
  Receipt Date: 20130916
  Transmission Date: 20140515
  Serious: Yes (Other)
  Sender: FDA-Public Use
  Company Number: US-JNJFOC-20130902377

PATIENT
  Sex: Female

DRUGS (7)
  1. CLADRIBINE [Suspect]
     Indication: LANGERHANS^ CELL HISTIOCYTOSIS
     Dosage: DAILY FOR 5 CONSECUTIVE DAYS REPEATED EVERY 4 WEEKS FOR 7 COURSES
     Route: 042
  2. ETOPOSIDE [Suspect]
     Indication: LANGERHANS^ CELL HISTIOCYTOSIS
     Route: 065
  3. METHOTREXATE [Suspect]
     Indication: LANGERHANS^ CELL HISTIOCYTOSIS
     Route: 065
  4. METHYLPREDNISOLONE [Suspect]
     Indication: LANGERHANS^ CELL HISTIOCYTOSIS
     Route: 065
  5. PREDNISONE [Suspect]
     Indication: LANGERHANS^ CELL HISTIOCYTOSIS
     Route: 065
  6. RADIOTHERAPY [Suspect]
     Indication: LANGERHANS^ CELL HISTIOCYTOSIS
     Route: 065
  7. VINBLASTINE [Suspect]
     Indication: LANGERHANS^ CELL HISTIOCYTOSIS
     Route: 065

REACTIONS (3)
  - Cerebrovascular accident [Unknown]
  - Bone marrow failure [Unknown]
  - Off label use [Unknown]
